FAERS Safety Report 8194062-6 (Version None)
Quarter: 2012Q1

REPORT INFORMATION
  Report Type: 
  Country: None (occurrence: None)
  Receive Date: 20120308
  Receipt Date: 20120228
  Transmission Date: 20120608
  Serious: Yes (Hospitalization)
  Sender: FDA-Public Use
  Company Number: FR-MERCK-1103FRA00015

PATIENT
  Age: 34 Year
  Sex: Female

DRUGS (2)
  1. NICARDIPINE HYDROCHLORIDE [Concomitant]
     Route: 048
  2. JANUVIA [Suspect]
     Indication: TYPE 2 DIABETES MELLITUS
     Route: 048
     Dates: start: 20100901, end: 20101201

REACTIONS (4)
  - GESTATIONAL HYPERTENSION [None]
  - MATERNAL EXPOSURE DURING PREGNANCY [None]
  - FAILED INDUCTION OF LABOUR [None]
  - CAESAREAN SECTION [None]
